FAERS Safety Report 6565675-X (Version None)
Quarter: 2010Q1

REPORT INFORMATION
  Report Type: 
  Country: None (occurrence: None)
  Receive Date: 20100126
  Receipt Date: 20100113
  Transmission Date: 20100710
  Serious: Yes (Hospitalization)
  Sender: FDA-Public Use
  Company Number: 10-PDX10-01065

PATIENT
  Age: 50 Year
  Sex: Male

DRUGS (1)
  1. FOLOTYN [Suspect]
     Indication: MYCOSIS FUNGOIDES

REACTIONS (3)
  - CONDITION AGGRAVATED [None]
  - IMPAIRED HEALING [None]
  - SKIN ULCER [None]
